FAERS Safety Report 13053343 (Version 1)
Quarter: 2016Q4

REPORT INFORMATION
  Report Type: Spontaneous
  Country: US (occurrence: US)
  Receive Date: 20161221
  Receipt Date: 20161221
  Transmission Date: 20170207
  Serious: Yes (Life-Threatening, Hospitalization)
  Sender: FDA-Public Use
  Company Number: None

PATIENT
  Age: 79 Year
  Sex: Male
  Weight: 94.2 kg

DRUGS (4)
  1. WARFARIN [Suspect]
     Active Substance: WARFARIN
     Indication: ATRIAL FIBRILLATION
     Dosage: 1 TABLET MG; EVERY DAY; PO
     Route: 048
     Dates: start: 19981006, end: 20110515
  2. WARFARIN [Suspect]
     Active Substance: WARFARIN
     Indication: MITRAL VALVE REPLACEMENT
     Dosage: 1 TABLET MG; EVERY DAY; PO
     Route: 048
     Dates: start: 19981006, end: 20110515
  3. WARFARIN [Suspect]
     Active Substance: WARFARIN
     Indication: VASCULAR OPERATION
     Dosage: 1 TABLET MG; EVERY DAY; PO
     Route: 048
     Dates: start: 19981006, end: 20110515
  4. CIPROFLOXACIN. [Suspect]
     Active Substance: CIPROFLOXACIN
     Indication: INFECTION
     Dosage: 1 TABLET MG; BID; PO
     Route: 048
     Dates: start: 20110510, end: 20110515

REACTIONS (1)
  - Haemorrhage intracranial [None]

NARRATIVE: CASE EVENT DATE: 20110515
